FAERS Safety Report 6401005-1 (Version None)
Quarter: 2009Q4

REPORT INFORMATION
  Report Type: 
  Country: None (occurrence: None)
  Receive Date: 20091015
  Receipt Date: 20070315
  Transmission Date: 20100525
  Serious: Yes (Disabling)
  Sender: FDA-Public Use
  Company Number: US-ASTRAZENECA-2006UW10960

PATIENT
  Sex: Female
  Weight: 119.5 kg

DRUGS (15)
  1. SEROQUEL [Suspect]
     Dosage: 25-100 MG
     Route: 048
     Dates: start: 20031119, end: 20040428
  2. ZYPREXA [Suspect]
  3. GLUCOTROL [Concomitant]
     Route: 048
  4. AVANDIA [Concomitant]
     Indication: DIABETES MELLITUS
     Dosage: 4 - 8 MG, DAILY
     Route: 048
     Dates: start: 20060615
  5. TRAZODONE [Concomitant]
     Dosage: 50- 100 MG, AT NIGHT
     Route: 048
     Dates: start: 20030308
  6. METFORMIN HYDROCHLORIDE [Concomitant]
     Indication: DIABETES MELLITUS
     Route: 048
     Dates: start: 20060615
  7. ZOCOR [Concomitant]
     Indication: HYPERCHOLESTEROLAEMIA
     Route: 048
     Dates: start: 20050405
  8. AVAPRO [Concomitant]
     Dosage: 150-300 MG, DAILY
     Route: 048
  9. HYDROCHLOROTHIAZIDE [Concomitant]
     Dosage: 12.5 TO 25 MG, DAILY
     Route: 048
  10. RISPERDAL [Concomitant]
     Dosage: 1- 3 MG, DAILY
     Route: 048
     Dates: end: 20050503
  11. TYLENOL (CAPLET) [Concomitant]
     Route: 048
  12. MELATONIN [Concomitant]
     Route: 048
  13. AMBIEN [Concomitant]
     Route: 048
  14. PRAVACHOL [Concomitant]
     Route: 048
  15. NAPROXEN [Concomitant]
     Route: 048

REACTIONS (1)
  - ILL-DEFINED DISORDER [None]
